FAERS Safety Report 20333074 (Version 2)
Quarter: 2022Q1

REPORT INFORMATION
  Report Type: Other
  Country: US (occurrence: US)
  Receive Date: 20220113
  Receipt Date: 20220315
  Transmission Date: 20220423
  Serious: Yes (Hospitalization)
  Sender: FDA-Public Use
  Company Number: US-NEUROCRINE BIOSCIENCES INC.-2022NBI00117

PATIENT

DRUGS (5)
  1. INGREZZA [Suspect]
     Active Substance: VALBENAZINE
     Indication: Tardive dyskinesia
     Dosage: 40 MILLIGRAM, QHS
     Route: 048
     Dates: start: 2021, end: 2021
  2. ZYPREXA [Concomitant]
     Active Substance: OLANZAPINE
     Dosage: UNK, QD (BEDTIME)
  3. AMANTADINE [Concomitant]
     Active Substance: AMANTADINE
     Dosage: UNK, QD (BEDTIME)
  4. COGENTIN [Concomitant]
     Active Substance: BENZTROPINE MESYLATE
     Dosage: UNK, QD (BEDTIME)
  5. CLONAZEPAM [Concomitant]
     Active Substance: CLONAZEPAM
     Dosage: UNK, QD (BEDTIME)

REACTIONS (4)
  - Affective disorder [Unknown]
  - Haematoma [Unknown]
  - Fall [Recovered/Resolved]
  - Intentional product use issue [Unknown]

NARRATIVE: CASE EVENT DATE: 20210101
